FAERS Safety Report 9582773 (Version 1)
Quarter: 2013Q4

REPORT INFORMATION
  Report Type: Spontaneous
  Country: US (occurrence: US)
  Receive Date: 20131002
  Receipt Date: 20131002
  Transmission Date: 20140711
  Serious: No
  Sender: FDA-Public Use
  Company Number: US-AMGEN-USASP2013042924

PATIENT
  Age: 55 Year
  Sex: Female
  Weight: 64.4 kg

DRUGS (7)
  1. ENBREL [Suspect]
     Indication: RHEUMATOID ARTHRITIS
     Dosage: 50 MG, QWK
     Route: 058
  2. PLAQUENIL                          /00072602/ [Concomitant]
     Dosage: 200 MG, UNK
  3. IMURAN                             /00001501/ [Concomitant]
     Dosage: 50 MG, UNK
  4. VITAMIN C                          /00008001/ [Concomitant]
     Dosage: 500 MG, UNK
  5. OMEGA 3 6 9 [Concomitant]
     Dosage: UNK
  6. GLUCOSE + CHONDROITIN [Concomitant]
     Dosage: UNK
  7. CALCIUM MAGNESIUM WITH VITAMIN D3 [Concomitant]
     Dosage: UNK

REACTIONS (1)
  - Therapeutic response decreased [Unknown]
